FAERS Safety Report 25221922 (Version 2)
Quarter: 2025Q2

REPORT INFORMATION
  Report Type: Spontaneous
  Country: FI (occurrence: FI)
  Receive Date: 20250421
  Receipt Date: 20250427
  Transmission Date: 20250716
  Serious: Yes (Other)
  Sender: AMGEN
  Company Number: FI-002147023-NVSC2020FI318327

PATIENT
  Age: 42 Year
  Sex: Female

DRUGS (3)
  1. AIMOVIG [Suspect]
     Active Substance: ERENUMAB-AOOE
     Indication: Migraine
     Route: 065
     Dates: start: 20200910
  2. AIMOVIG [Suspect]
     Active Substance: ERENUMAB-AOOE
     Route: 065
  3. AIMOVIG [Suspect]
     Active Substance: ERENUMAB-AOOE
     Route: 065
     Dates: start: 202301

REACTIONS (10)
  - Polychondritis [Unknown]
  - Erythema [Recovering/Resolving]
  - Ear swelling [Recovering/Resolving]
  - Ear inflammation [Recovering/Resolving]
  - Ear pain [Recovering/Resolving]
  - Muscle discomfort [Unknown]
  - Muscle fatigue [Unknown]
  - Blood creatine phosphokinase increased [Unknown]
  - Antinuclear antibody increased [Unknown]
  - Oral herpes [Unknown]

NARRATIVE: CASE EVENT DATE: 20200101
